FAERS Safety Report 13145085 (Version 1)
Quarter: 2017Q1

REPORT INFORMATION
  Report Type: Report from Study
  Country: AR (occurrence: AR)
  Receive Date: 20170124
  Receipt Date: 20170124
  Transmission Date: 20170428
  Serious: Yes (Other)
  Sender: FDA-Public Use
  Company Number: PHHY2017AR009416

PATIENT
  Sex: Female

DRUGS (1)
  1. DIOVAN [Suspect]
     Active Substance: VALSARTAN
     Indication: PRODUCT USED FOR UNKNOWN INDICATION
     Dosage: 0.5 DF, BID (HALF INTHE MORNINGS AND HALF AT NIGHTS)
     Route: 065
     Dates: end: 20170105

REACTIONS (8)
  - Laryngeal oedema [Recovering/Resolving]
  - Nonspecific reaction [Recovering/Resolving]
  - Local swelling [Recovering/Resolving]
  - Dyspnoea [Recovering/Resolving]
  - Adjustment disorder with depressed mood [Recovering/Resolving]
  - Drug prescribing error [Unknown]
  - Vomiting [Recovering/Resolving]
  - Wrong technique in product usage process [Unknown]
